FAERS Safety Report 8154026-5 (Version None)
Quarter: 2012Q1

REPORT INFORMATION
  Report Type: 
  Country: None (occurrence: None)
  Receive Date: 20120221
  Receipt Date: 20120221
  Transmission Date: 20120608
  Serious: Yes (Other)
  Sender: FDA-Public Use
  Company Number: None

PATIENT
  Sex: Female
  Weight: 101.15 kg

DRUGS (4)
  1. CLARITHROMYCIN [Concomitant]
     Route: 048
  2. AMOXILLIN [Concomitant]
     Route: 048
  3. OMEPRAZOLE [Suspect]
     Indication: HELICOBACTER INFECTION
     Dosage: 20.0 MG
     Route: 048
     Dates: start: 20120214, end: 20120219
  4. OMEPRAZOLE [Concomitant]
     Route: 048

REACTIONS (4)
  - HYPERSOMNIA [None]
  - FEELING ABNORMAL [None]
  - DRUG INTERACTION [None]
  - FATIGUE [None]
